FAERS Safety Report 8350791-2 (Version None)
Quarter: 2012Q2

REPORT INFORMATION
  Report Type: 
  Country: None (occurrence: None)
  Receive Date: 20120510
  Receipt Date: 20120508
  Transmission Date: 20120825
  Serious: Yes (Life-Threatening, Hospitalization, Disabling, Other)
  Sender: FDA-Public Use
  Company Number: SA-GLAXOSMITHKLINE-B0800541A

PATIENT
  Age: 51 Year
  Sex: Male

DRUGS (5)
  1. COVERAM [Concomitant]
     Indication: HYPERTENSION
     Dosage: 10MG PER DAY
     Dates: start: 20120426
  2. NITROGLYCERIN [Concomitant]
     Indication: HYPERTENSION
     Dates: start: 20120426, end: 20120429
  3. PAROXETINE HYDROCHLORIDE [Suspect]
     Indication: ANXIETY
     Dosage: 20MG PER DAY
     Route: 048
     Dates: start: 20120426, end: 20120503
  4. ASPIRIN [Concomitant]
     Indication: PROPHYLAXIS
     Dosage: 80MG SINGLE DOSE
     Dates: start: 20120426
  5. OMEPRAZOLE [Concomitant]
     Indication: GASTRITIS
     Dosage: 40MG PER DAY
     Dates: start: 20120426

REACTIONS (8)
  - ABASIA [None]
  - LETHARGY [None]
  - HYPONATRAEMIA [None]
  - HYPOKALAEMIA [None]
  - ALTERED STATE OF CONSCIOUSNESS [None]
  - MALAISE [None]
  - URINARY RETENTION [None]
  - ASTHENIA [None]
